FAERS Safety Report 4456708-5 (Version None)
Quarter: 2004Q3

REPORT INFORMATION
  Report Type: 
  Country: None (occurrence: None)
  Receive Date: 20040921
  Receipt Date: 20040908
  Transmission Date: 20050211
  Serious: No
  Sender: FDA-Public Use
  Company Number: 04H-163-0273110-00

PATIENT

DRUGS (4)
  1. LEUCOVORIN CALCIUM [Suspect]
     Indication: CHEMOTHERAPY
     Dosage: 500 MG/M2/D X 4 DAYS, Q 28 DAYSX2 CYCLES, INTRAVENOUS
     Route: 042
  2. FLUOROURACIL [Suspect]
     Indication: CHEMOTHERAPY
     Dosage: 800 MG/M2/D, X 4 DAYS, Q 28 DAYSX2 CYCLES, INTRAVENOUS
     Route: 042
  3. CISPLATIN [Suspect]
     Indication: CHEMOTHERAPY
     Dosage: SEE IMAGE, INTRAVENOUS
     Route: 042
  4. CISPLATIN [Suspect]
     Indication: RADIOTHERAPY
     Dosage: SEE IMAGE, INTRAVENOUS
     Route: 042

REACTIONS (1)
  - SKIN TOXICITY [None]
